FAERS Safety Report 17435315 (Version 2)
Quarter: 2021Q1

REPORT INFORMATION
  Report Type: Spontaneous
  Country: US (occurrence: US)
  Receive Date: 20200219
  Receipt Date: 20210208
  Transmission Date: 20210419
  Serious: Yes (Death, Other)
  Sender: FDA-Public Use
  Company Number: US-PFIZER INC-2020037295

PATIENT
  Age: 1 Day
  Sex: Male

DRUGS (1)
  1. BENZATHINE BENZYLPENICILLIN [Suspect]
     Active Substance: PENICILLIN G BENZATHINE
     Indication: CONGENITAL SYPHILIS
     Dosage: 50000 IU, UNK
     Route: 042
     Dates: start: 19961016, end: 19961016

REACTIONS (4)
  - Incorrect route of product administration [Fatal]
  - Cardio-respiratory arrest neonatal [Fatal]
  - Pulmonary embolism [Fatal]
  - Accidental overdose [Fatal]

NARRATIVE: CASE EVENT DATE: 19961016
